FAERS Safety Report 24268477 (Version 1)
Quarter: 2024Q3

REPORT INFORMATION
  Report Type: Spontaneous
  Country: US (occurrence: US)
  Receive Date: 20240830
  Receipt Date: 20240830
  Transmission Date: 20241016
  Serious: Yes (Other)
  Sender: PFIZER
  Company Number: US-PFIZER INC-PV202400111855

PATIENT
  Age: 81 Year

DRUGS (2)
  1. ESTRING [Suspect]
     Active Substance: ESTRADIOL
     Indication: Urinary tract infection
     Dosage: ONCE EVERY THREE MONTHS
  2. ESTRING [Suspect]
     Active Substance: ESTRADIOL
     Indication: Transient ischaemic attack

REACTIONS (4)
  - Urinary tract infection [Unknown]
  - Cognitive disorder [Unknown]
  - Off label use [Unknown]
  - Drug effective for unapproved indication [Unknown]
